FAERS Safety Report 7014641-9 (Version None)
Quarter: 2010Q3

REPORT INFORMATION
  Report Type: 
  Country: None (occurrence: None)
  Receive Date: 20100927
  Receipt Date: 20100916
  Transmission Date: 20110219
  Serious: Yes (Other)
  Sender: FDA-Public Use
  Company Number: JP-ROCHE-724614

PATIENT
  Sex: Male
  Weight: 70 kg

DRUGS (2)
  1. PEGASYS [Suspect]
     Indication: HEPATITIS C
     Route: 058
     Dates: start: 20080911, end: 20090319
  2. COPEGUS [Suspect]
     Indication: HEPATITIS C
     Route: 048
     Dates: start: 20080911, end: 20090406

REACTIONS (4)
  - ECZEMA [None]
  - GASTRITIS [None]
  - HYPERTENSION [None]
  - VITREOUS HAEMORRHAGE [None]
